FAERS Safety Report 23662813 (Version 1)
Quarter: 2024Q1

REPORT INFORMATION
  Report Type: Report from Study
  Country: PT (occurrence: PT)
  Receive Date: 20240322
  Receipt Date: 20240322
  Transmission Date: 20240410
  Serious: Yes (Hospitalization)
  Sender: FDA-Public Use
  Company Number: PT-SUN PHARMACEUTICAL INDUSTRIES LTD-2024R1-437361

PATIENT
  Age: 61 Year
  Sex: Male
  Weight: 60 kg

DRUGS (6)
  1. CAPECITABINE [Suspect]
     Active Substance: CAPECITABINE
     Indication: Adenocarcinoma gastric
     Dosage: 1000 MILLIGRAM/SQ. METER, BID (EVERY 12 HOURS)
     Route: 048
     Dates: start: 20240220, end: 20240226
  2. CAPECITABINE [Suspect]
     Active Substance: CAPECITABINE
     Dosage: 1000 MILLIGRAM/SQ. METER, BID (EVERY 12 HOURS)
     Route: 048
     Dates: start: 20240220, end: 20240226
  3. LOPERAMIDE [Suspect]
     Active Substance: LOPERAMIDE
     Indication: Prophylaxis
     Dosage: 4 MILLIGRAM, BID
     Route: 048
     Dates: start: 20240220, end: 20240226
  4. OXALIPLATIN [Suspect]
     Active Substance: OXALIPLATIN
     Indication: Adenocarcinoma gastric
     Dosage: 130 MILLIGRAM/SQ. METER, EVERY 3 WEEKS
     Route: 042
     Dates: start: 20240220, end: 20240220
  5. TISLELIZUMAB [Suspect]
     Active Substance: TISLELIZUMAB
     Indication: Adenocarcinoma gastric
     Dosage: 200 MILLIGRAM, Q3W
     Route: 042
     Dates: start: 20240220, end: 20240220
  6. ZANIDATAMAB [Suspect]
     Active Substance: ZANIDATAMAB
     Indication: Adenocarcinoma gastric
     Dosage: 1800 MILLIGRAM, Q3W
     Route: 042
     Dates: start: 20240220, end: 20240220

REACTIONS (1)
  - Diarrhoea [Not Recovered/Not Resolved]

NARRATIVE: CASE EVENT DATE: 20240227
